FAERS Safety Report 19359707 (Version 3)
Quarter: 2021Q4

REPORT INFORMATION
  Report Type: Other
  Country: CA (occurrence: CA)
  Receive Date: 20210601
  Receipt Date: 20211203
  Transmission Date: 20220303
  Serious: Yes (Hospitalization, Other)
  Sender: FDA-Public Use
  Company Number: CA-APOTEX-2021AP012728

PATIENT
  Age: 50 Year
  Sex: Female

DRUGS (64)
  1. LITHIUM CARBONATE [Suspect]
     Active Substance: LITHIUM CARBONATE
     Indication: Complex regional pain syndrome
     Dosage: UNK
     Route: 065
  2. PENTOXIFYLLINE [Suspect]
     Active Substance: PENTOXIFYLLINE
     Indication: Complex regional pain syndrome
     Dosage: UNK
     Route: 065
  3. MYCOPHENOLATE MOFETIL [Suspect]
     Active Substance: MYCOPHENOLATE MOFETIL
     Indication: Complex regional pain syndrome
     Dosage: UNK
     Route: 065
  4. DILTIAZEM [Suspect]
     Active Substance: DILTIAZEM
     Indication: Complex regional pain syndrome
     Dosage: UNK
     Route: 065
  5. MONTELUKAST [Suspect]
     Active Substance: MONTELUKAST SODIUM
     Indication: Complex regional pain syndrome
     Dosage: UNK
     Route: 065
  6. PREGABALIN [Suspect]
     Active Substance: PREGABALIN
     Indication: Complex regional pain syndrome
     Dosage: UNK
     Route: 065
  7. PREDNISONE [Suspect]
     Active Substance: PREDNISONE
     Indication: Complex regional pain syndrome
     Dosage: UNK, QD
     Route: 065
  8. MEMANTINE [Suspect]
     Active Substance: MEMANTINE
     Indication: Complex regional pain syndrome
     Dosage: UNK
     Route: 065
  9. CIMETIDINE [Suspect]
     Active Substance: CIMETIDINE
     Indication: Complex regional pain syndrome
     Dosage: UNK
     Route: 065
  10. CLONIDINE [Suspect]
     Active Substance: CLONIDINE
     Indication: Complex regional pain syndrome
     Dosage: UNK
     Route: 065
  11. AMITRIPTYLINE [Suspect]
     Active Substance: AMITRIPTYLINE
     Indication: Complex regional pain syndrome
     Dosage: UNK
     Route: 065
  12. HYDROXYCHLOROQUINE [Suspect]
     Active Substance: HYDROXYCHLOROQUINE
     Indication: Complex regional pain syndrome
     Dosage: UNK
     Route: 065
  13. METOPROLOL [Suspect]
     Active Substance: METOPROLOL
     Indication: Complex regional pain syndrome
     Dosage: UNK
     Route: 065
  14. NALTREXONE [Suspect]
     Active Substance: NALTREXONE
     Indication: Complex regional pain syndrome
     Dosage: 4.5 MILLIGRAM, QD
     Route: 065
  15. AMLODIPINE BESYLATE [Suspect]
     Active Substance: AMLODIPINE BESYLATE
     Indication: Complex regional pain syndrome
     Dosage: UNK
     Route: 065
  16. ANAKINRA [Suspect]
     Active Substance: ANAKINRA
     Indication: Complex regional pain syndrome
     Dosage: UNK
     Route: 065
  17. APREMILAST [Suspect]
     Active Substance: APREMILAST
     Indication: Complex regional pain syndrome
     Dosage: UNK
     Route: 065
  18. BUMETANIDE [Suspect]
     Active Substance: BUMETANIDE
     Indication: Complex regional pain syndrome
     Dosage: UNK
     Route: 065
  19. CAPSAICIN [Suspect]
     Active Substance: CAPSAICIN
     Indication: Complex regional pain syndrome
     Dosage: UNK
     Route: 061
  20. ERELZI [Suspect]
     Active Substance: ETANERCEPT-SZZS
     Indication: Complex regional pain syndrome
     Dosage: UNK
     Route: 065
  21. IBUDILAST [Suspect]
     Active Substance: IBUDILAST
     Indication: Complex regional pain syndrome
     Dosage: UNK
     Route: 065
  22. KETAMINE [Suspect]
     Active Substance: KETAMINE
     Indication: Complex regional pain syndrome
     Dosage: UNK
     Route: 048
  23. LIDOCAINE HYDROCHLORIDE [Suspect]
     Active Substance: LIDOCAINE HYDROCHLORIDE
     Indication: Complex regional pain syndrome
     Dosage: UNK
     Route: 061
  24. MAGNESIUM [Suspect]
     Active Substance: MAGNESIUM
     Indication: Migraine prophylaxis
     Dosage: UNK
     Route: 065
  25. MEXILETINE [Suspect]
     Active Substance: MEXILETINE
     Indication: Complex regional pain syndrome
     Dosage: UNK
     Route: 065
  26. ACETYLCYSTEINE [Suspect]
     Active Substance: ACETYLCYSTEINE
     Indication: Complex regional pain syndrome
     Dosage: UNK
     Route: 065
  27. PALMIDROL [Suspect]
     Active Substance: PALMIDROL
     Indication: Complex regional pain syndrome
     Dosage: UNK
     Route: 065
  28. RIBOFLAVIN [Suspect]
     Active Substance: RIBOFLAVIN
     Indication: Migraine prophylaxis
     Dosage: UNK
     Route: 065
  29. RIBOFLAVIN [Suspect]
     Active Substance: RIBOFLAVIN
     Indication: Complex regional pain syndrome
  30. ACETYLCYSTEINE [Suspect]
     Active Substance: ACETYLCYSTEINE
     Indication: Complex regional pain syndrome
     Dosage: UNK
     Route: 065
  31. SPIRONOLACTONE [Suspect]
     Active Substance: SPIRONOLACTONE
     Indication: Complex regional pain syndrome
     Dosage: UNK
     Route: 065
  32. VITAMIN C [Suspect]
     Active Substance: ASCORBIC ACID
     Indication: Complex regional pain syndrome
     Dosage: 1000 MILLIGRAM
     Route: 065
  33. TRAZODONE [Concomitant]
     Active Substance: TRAZODONE HYDROCHLORIDE
     Indication: Insomnia
     Route: 065
  34. CALCITONIN [Concomitant]
     Active Substance: CALCITONIN
     Indication: Complex regional pain syndrome
     Route: 065
  35. EZETIMIBE [Concomitant]
     Active Substance: EZETIMIBE
     Indication: Hyperlipidaemia
     Route: 065
  36. ACETYLCYSTEINE [Concomitant]
     Active Substance: ACETYLCYSTEINE
     Indication: Product used for unknown indication
     Dosage: UNK
     Route: 065
  37. AMITRIPTYLINE [Concomitant]
     Active Substance: AMITRIPTYLINE
     Indication: Product used for unknown indication
     Dosage: UNK
     Route: 065
  38. AMLODIPINE [Concomitant]
     Active Substance: AMLODIPINE BESYLATE
     Indication: Product used for unknown indication
     Dosage: UNK
     Route: 065
  39. APREMILAST [Concomitant]
     Active Substance: APREMILAST
     Indication: Product used for unknown indication
     Dosage: UNK
     Route: 065
  40. BUMETANIDE [Concomitant]
     Active Substance: BUMETANIDE
     Indication: Product used for unknown indication
     Dosage: UNK
     Route: 065
  41. CAPSAICIN [Concomitant]
     Active Substance: CAPSAICIN
     Indication: Product used for unknown indication
     Dosage: UNK
     Route: 065
  42. CIMETIDINE [Concomitant]
     Active Substance: CIMETIDINE
     Indication: Product used for unknown indication
     Dosage: UNK
     Route: 065
  43. CLONIDINE [Concomitant]
     Active Substance: CLONIDINE
     Indication: Product used for unknown indication
     Dosage: UNK
     Route: 065
  44. DILTIAZEM [Concomitant]
     Active Substance: DILTIAZEM
     Indication: Product used for unknown indication
     Dosage: UNK
     Route: 065
  45. ERELZI [Concomitant]
     Active Substance: ETANERCEPT-SZZS
     Indication: Product used for unknown indication
     Dosage: UNK
     Route: 065
  46. HYDROXYCHLOROQUINE SULFATE [Concomitant]
     Active Substance: HYDROXYCHLOROQUINE SULFATE
     Indication: Product used for unknown indication
     Dosage: UNK
     Route: 065
  47. KETAMINE [Concomitant]
     Active Substance: KETAMINE
     Indication: Product used for unknown indication
     Dosage: UNK
     Route: 065
  48. KINERET [Concomitant]
     Active Substance: ANAKINRA
     Indication: Product used for unknown indication
     Dosage: UNK
     Route: 065
  49. LIDOCAINE [Concomitant]
     Active Substance: LIDOCAINE
     Indication: Product used for unknown indication
     Dosage: UNK
     Route: 065
  50. MAGNESIUM [Concomitant]
     Active Substance: MAGNESIUM
     Indication: Product used for unknown indication
     Dosage: UNK
     Route: 065
  51. MEMANTINE [Concomitant]
     Active Substance: MEMANTINE
     Indication: Product used for unknown indication
     Dosage: UNK
     Route: 065
  52. METOPROLOL [Concomitant]
     Active Substance: METOPROLOL
     Indication: Product used for unknown indication
     Dosage: UNK
     Route: 065
  53. MEXILETINE HYDROCHLORIDE [Concomitant]
     Active Substance: MEXILETINE HYDROCHLORIDE
     Indication: Product used for unknown indication
     Dosage: UNK
     Route: 065
  54. MONTELUKAST [Concomitant]
     Active Substance: MONTELUKAST SODIUM
     Indication: Product used for unknown indication
     Dosage: UNK
     Route: 065
  55. MYCOPHENOLATE MOFETIL [Concomitant]
     Active Substance: MYCOPHENOLATE MOFETIL
     Indication: Product used for unknown indication
     Dosage: UNK
     Route: 065
  56. NALTREXONE [Concomitant]
     Active Substance: NALTREXONE
     Indication: Product used for unknown indication
     Dosage: UNK
     Route: 065
  57. PENTOXIFYLLINE [Concomitant]
     Active Substance: PENTOXIFYLLINE
     Indication: Product used for unknown indication
     Dosage: UNK
     Route: 065
  58. PREDNISONE [Concomitant]
     Active Substance: PREDNISONE
     Indication: Product used for unknown indication
     Dosage: UNK
     Route: 065
  59. PREGABALIN [Concomitant]
     Active Substance: PREGABALIN
     Indication: Product used for unknown indication
     Dosage: UNK
     Route: 065
  60. RIBOFLAVIN [Concomitant]
     Active Substance: RIBOFLAVIN
     Indication: Product used for unknown indication
     Dosage: UNK
     Route: 065
  61. SPIRONOLACTONE [Concomitant]
     Active Substance: SPIRONOLACTONE
     Indication: Product used for unknown indication
     Dosage: UNK
     Route: 065
  62. VITAMIN C [Concomitant]
     Active Substance: ASCORBIC ACID
     Indication: Product used for unknown indication
     Dosage: UNK
     Route: 065
  63. IBUDILAST [Concomitant]
     Active Substance: IBUDILAST
     Indication: Product used for unknown indication
     Dosage: UNK
     Route: 065
  64. PALMIDROL [Concomitant]
     Active Substance: PALMIDROL
     Indication: Product used for unknown indication
     Dosage: UNK
     Route: 065

REACTIONS (21)
  - Body tinea [Recovered/Resolved]
  - Bone density decreased [Recovered/Resolved]
  - Cataract [Recovered/Resolved]
  - Cellulitis [Recovered/Resolved]
  - Contusion [Recovered/Resolved]
  - Fatigue [Recovered/Resolved]
  - Glucose tolerance impaired [Recovered/Resolved]
  - Herpes zoster [Recovered/Resolved]
  - Hyperlipidaemia [Recovered/Resolved]
  - Hypertension [Recovered/Resolved]
  - Impaired quality of life [Recovered/Resolved]
  - Impaired work ability [Recovered/Resolved]
  - Infection susceptibility increased [Recovered/Resolved]
  - Inhibitory drug interaction [Recovered/Resolved]
  - Oral herpes [Recovered/Resolved]
  - Poor quality sleep [Recovered/Resolved]
  - Skin disorder [Recovered/Resolved]
  - Purpura [Recovered/Resolved]
  - Weight increased [Recovered/Resolved]
  - Insomnia [Recovered/Resolved]
  - Drug ineffective [Recovered/Resolved]
